FAERS Safety Report 20445618 (Version 1)
Quarter: 2022Q1

REPORT INFORMATION
  Report Type: Spontaneous
  Country: US (occurrence: None)
  Receive Date: 20220208
  Receipt Date: 20220208
  Transmission Date: 20220423
  Serious: Yes (unspecified)
  Sender: FDA-Public Use
  Company Number: None

PATIENT
  Age: 70 Year
  Sex: Female
  Weight: 54.4 kg

DRUGS (3)
  1. OPDIVO [Suspect]
     Active Substance: NIVOLUMAB
     Indication: Pleural mesothelioma malignant
     Dosage: OTHER FREQUENCY : ONE TIME INFUSION;?
     Route: 041
     Dates: start: 20220128, end: 20220128
  2. Diphenhydramine 25 mg IVP [Concomitant]
     Dates: start: 20220128, end: 20220128
  3. EpiPen -.3 [Concomitant]
     Dates: start: 20220128, end: 20220128

REACTIONS (8)
  - Infusion related reaction [None]
  - Flushing [None]
  - Erythema [None]
  - Swelling face [None]
  - Dyspnoea [None]
  - Hypertension [None]
  - Heart rate increased [None]
  - Oxygen saturation decreased [None]

NARRATIVE: CASE EVENT DATE: 20220128
